FAERS Safety Report 6817057-0 (Version None)
Quarter: 2010Q3

REPORT INFORMATION
  Report Type: 
  Country: None (occurrence: None)
  Receive Date: 20100706
  Receipt Date: 20100628
  Transmission Date: 20110219
  Serious: Yes (Hospitalization)
  Sender: FDA-Public Use
  Company Number: FR-ROCHE-712673

PATIENT
  Sex: Male

DRUGS (10)
  1. CELLCEPT [Suspect]
     Indication: PROPHYLAXIS AGAINST TRANSPLANT REJECTION
     Route: 048
  2. PROGRAF [Suspect]
     Indication: PROPHYLAXIS AGAINST TRANSPLANT REJECTION
     Dosage: 4MG IN MORNING AND 4.5 MG IN EVENING
     Route: 048
  3. PROGRAF [Suspect]
     Dosage: 4 MG IN MORNING AND 3.5 MG IN EVENING
     Route: 048
  4. PROGRAF [Suspect]
     Route: 048
  5. CORTANCYL [Concomitant]
  6. NEBILOX [Concomitant]
  7. COVERSYL [Concomitant]
  8. HYPERIUM [Concomitant]
  9. PRAVASTATIN [Concomitant]
  10. SODIUM BICARBONATE [Concomitant]

REACTIONS (2)
  - PROTEINURIA [None]
  - RENAL IMPAIRMENT [None]
